FAERS Safety Report 22193338 (Version 1)
Quarter: 2023Q2

REPORT INFORMATION
  Report Type: Spontaneous
  Country: FR (occurrence: FR)
  Receive Date: 20230410
  Receipt Date: 20230410
  Transmission Date: 20230721
  Serious: Yes (Hospitalization)
  Sender: FDA-Public Use
  Company Number: FR-GLASSHOUSE PHARMACEUTICALS LIMITED CA-2023GLH00006

PATIENT
  Age: 38 Year
  Sex: Female

DRUGS (21)
  1. ARIPIPRAZOLE [Suspect]
     Active Substance: ARIPIPRAZOLE
     Dosage: 5 MG, 1X/DAY
     Dates: start: 20220610
  2. ARIPIPRAZOLE [Suspect]
     Active Substance: ARIPIPRAZOLE
     Dosage: 10 MG, 1X/DAY
     Dates: start: 20220612
  3. ARIPIPRAZOLE [Suspect]
     Active Substance: ARIPIPRAZOLE
     Dosage: 15 MG, 1X/DAY
     Dates: start: 20220613
  4. ARIPIPRAZOLE [Suspect]
     Active Substance: ARIPIPRAZOLE
     Dosage: 30 MG, 1X/DAY
     Dates: start: 20220624, end: 20220706
  5. LAMOTRIGINE [Suspect]
     Active Substance: LAMOTRIGINE
     Dosage: 25 MG, 1X/DAY
     Dates: start: 20220608
  6. LAMOTRIGINE [Suspect]
     Active Substance: LAMOTRIGINE
     Dosage: 50 MG, 1X/DAY
     Dates: start: 20220623
  7. LAMOTRIGINE [Suspect]
     Active Substance: LAMOTRIGINE
     Dosage: 75 MG, 1X/DAY
     Dates: start: 20220601, end: 20220706
  8. DIAZEPAM [Suspect]
     Active Substance: DIAZEPAM
     Dosage: 30 MG, 1X/DAY
     Dates: start: 20220422
  9. ZOPICLONE [Suspect]
     Active Substance: ZOPICLONE
     Dosage: 7.5 MG, 1X/DAY
     Dates: start: 20220422
  10. ETONOGESTREL [Concomitant]
     Active Substance: ETONOGESTREL
     Dosage: IMPLANT
  11. QUETIAPINE [Concomitant]
     Active Substance: QUETIAPINE
     Dosage: 400 MG, 1X/DAY
     Dates: start: 20220422
  12. QUETIAPINE [Concomitant]
     Active Substance: QUETIAPINE
     Dosage: 300 MG, 1X/DAY
     Dates: start: 20220528, end: 20220605
  13. AMISULPRIDE [Concomitant]
     Active Substance: AMISULPRIDE
     Dosage: 50 MG, 1X/DAY
     Dates: start: 20220422, end: 20220423
  14. CYAMEMAZINE [Concomitant]
     Active Substance: CYAMEMAZINE
     Dosage: 150 MG, 1X/DAY
     Dates: start: 20220422
  15. PAROXETINE [Concomitant]
     Active Substance: PAROXETINE
     Indication: Depressive symptom
     Dosage: 20 MG, 1X/DAY
     Dates: start: 20220423
  16. PAROXETINE [Concomitant]
     Active Substance: PAROXETINE
     Dosage: 40 MG, 1X/DAY
     Dates: start: 20220426
  17. PAROXETINE [Concomitant]
     Active Substance: PAROXETINE
     Dosage: 20 MG, 1X/DAY
     Dates: start: 20220611
  18. PAROXETINE [Concomitant]
     Active Substance: PAROXETINE
     Dosage: 10 MG, 1X/DAY
     Dates: start: 20220613, end: 20220626
  19. MIRTAZAPINE [Concomitant]
     Active Substance: MIRTAZAPINE
     Indication: Depressive symptom
     Dosage: 7.5 MG, 1X/DAY
     Dates: start: 20220610
  20. MIRTAZAPINE [Concomitant]
     Active Substance: MIRTAZAPINE
     Indication: Insomnia
     Dosage: 15 MG, 1X/DAY
     Dates: start: 20220612
  21. MIRTAZAPINE [Concomitant]
     Active Substance: MIRTAZAPINE
     Dosage: 30 MG, 1X/DAY
     Dates: start: 20220623, end: 20220625

REACTIONS (6)
  - Drug interaction [Recovered/Resolved]
  - Drug interaction [Recovered/Resolved]
  - Hallucination, visual [Recovered/Resolved]
  - Delusion [Recovered/Resolved]
  - Confusional state [Recovered/Resolved]
  - Affect lability [Recovered/Resolved]

NARRATIVE: CASE EVENT DATE: 20220601
